FAERS Safety Report 23949564 (Version 1)
Quarter: 2024Q2

REPORT INFORMATION
  Report Type: Report from Study
  Country: US (occurrence: US)
  Receive Date: 20240607
  Receipt Date: 20240607
  Transmission Date: 20240716
  Serious: Yes (Other)
  Sender: FDA-Public Use
  Company Number: US-ABBVIE-5788552

PATIENT
  Sex: Female

DRUGS (1)
  1. QULIPTA [Suspect]
     Active Substance: ATOGEPANT
     Indication: Product used for unknown indication
     Dosage: STOP DATE 2024
     Route: 048
     Dates: start: 20240105

REACTIONS (3)
  - Post procedural complication [Recovering/Resolving]
  - Hysterectomy [Unknown]
  - Migraine [Unknown]

NARRATIVE: CASE EVENT DATE: 20240101
